FAERS Safety Report 24216269 (Version 3)
Quarter: 2025Q3

REPORT INFORMATION
  Report Type: Report from Study
  Country: US (occurrence: US)
  Receive Date: 20240816
  Receipt Date: 20250704
  Transmission Date: 20251020
  Serious: Yes (Hospitalization)
  Sender: UNKNOWN
  Company Number: US-MIRUM PHARMACEUTICALS, INC.-US-MIR-24-00593

PATIENT

DRUGS (3)
  1. LIVMARLI [Suspect]
     Active Substance: MARALIXIBAT CHLORIDE
     Indication: Alagille syndrome
     Dosage: 0.75 MILLILITER, BID
     Route: 048
     Dates: start: 2024
  2. LIVMARLI [Suspect]
     Active Substance: MARALIXIBAT CHLORIDE
     Route: 048
     Dates: start: 2024, end: 2024
  3. LIVMARLI [Suspect]
     Active Substance: MARALIXIBAT CHLORIDE
     Dosage: 0.9 MILLILITER, QD
     Route: 048
     Dates: start: 202407, end: 2024

REACTIONS (4)
  - Liver transplant [Unknown]
  - Unevaluable event [Unknown]
  - Alopecia [Recovered/Resolved]
  - Off label use [Unknown]

NARRATIVE: CASE EVENT DATE: 20240101
